FAERS Safety Report 6371515-4 (Version None)
Quarter: 2009Q3

REPORT INFORMATION
  Report Type: 
  Country: None (occurrence: None)
  Receive Date: 20090923
  Receipt Date: 20080313
  Transmission Date: 20100115
  Serious: Yes (Hospitalization, Other)
  Sender: FDA-Public Use
  Company Number: US-ASTRAZENECA-2007UW21674

PATIENT
  Age: 16618 Day
  Sex: Female
  Weight: 112.7 kg

DRUGS (12)
  1. SEROQUEL [Suspect]
     Indication: BIPOLAR DISORDER
     Dosage: 100 MG - 200 MG
     Route: 048
     Dates: start: 20030201, end: 20061101
  2. SEROQUEL [Suspect]
     Dosage: 25-100 MG
     Route: 048
     Dates: start: 20060304
  3. INDOMETHACIN [Concomitant]
     Dates: start: 20030804
  4. BENTYL [Concomitant]
     Dates: start: 20030804
  5. LITHIUM CARBONATE [Concomitant]
     Dosage: 300-950 MG
     Route: 048
     Dates: start: 20050112
  6. ALBUTEROL [Concomitant]
     Dates: start: 20050112
  7. ADVAIR HFA [Concomitant]
     Dates: start: 20060729
  8. NOVOLOG [Concomitant]
     Dosage: 100 U/ML, DAILY
     Route: 058
     Dates: start: 20061011
  9. LISINOPRIL [Concomitant]
     Route: 048
     Dates: start: 20061203
  10. ZOCOR [Concomitant]
     Route: 048
     Dates: start: 20061203
  11. INSULIN [Concomitant]
     Dosage: 70/30, 20 UNITS SUBCUTANEOUSLY DAILY
     Route: 058
     Dates: start: 20061203
  12. METFORMIN HCL [Concomitant]
     Route: 048
     Dates: start: 20061203

REACTIONS (4)
  - DIABETES MELLITUS [None]
  - DIABETES MELLITUS INADEQUATE CONTROL [None]
  - DIABETIC KETOACIDOSIS [None]
  - TYPE 2 DIABETES MELLITUS [None]
